FAERS Safety Report 25199393 (Version 2)
Quarter: 2025Q2

REPORT INFORMATION
  Report Type: Report from Study
  Country: US (occurrence: US)
  Receive Date: 20250415
  Receipt Date: 20250616
  Transmission Date: 20250717
  Serious: Yes (Other)
  Sender: NOVARTIS
  Company Number: US-002147023-NVSC2025US061367

PATIENT
  Age: 50 Year
  Sex: Female

DRUGS (1)
  1. KESIMPTA [Suspect]
     Active Substance: OFATUMUMAB
     Indication: Relapsing multiple sclerosis
     Dosage: 20 MG, QMO
     Route: 058
     Dates: start: 20250331

REACTIONS (5)
  - Optic neuritis [Unknown]
  - Hyperhidrosis [Unknown]
  - Pruritus [Unknown]
  - Emotional distress [Unknown]
  - Chills [Unknown]

NARRATIVE: CASE EVENT DATE: 20250331
